FAERS Safety Report 8612738-0 (Version None)
Quarter: 2012Q3

REPORT INFORMATION
  Report Type: 
  Country: None (occurrence: None)
  Receive Date: 20120822
  Receipt Date: 20110823
  Transmission Date: 20120928
  Serious: No
  Sender: FDA-Public Use
  Company Number: US-ASTRAZENECA-2011SE50975

PATIENT
  Sex: Male

DRUGS (2)
  1. SYMBICORT [Suspect]
     Dosage: 160 MICROGRAMM UNKNOWN
     Route: 055
  2. SYMBICORT [Suspect]
     Dosage: 80 MICROGRAMM UNKNOWN
     Route: 055

REACTIONS (3)
  - MUSCLE SPASMS [None]
  - PAIN IN EXTREMITY [None]
  - MUSCULOSKELETAL PAIN [None]
